FAERS Safety Report 16423285 (Version 3)
Quarter: 2019Q3

REPORT INFORMATION
  Report Type: Report from Study
  Country: US (occurrence: US)
  Receive Date: 20190612
  Receipt Date: 20190902
  Transmission Date: 20191004
  Serious: Yes (Other)
  Sender: FDA-Public Use
  Company Number: US-ALEXION PHARMACEUTICALS INC.-A201908641

PATIENT
  Sex: Female

DRUGS (1)
  1. ULTOMIRIS [Suspect]
     Active Substance: RAVULIZUMAB-CWVZ
     Indication: PRODUCT USED FOR UNKNOWN INDICATION
     Route: 065

REACTIONS (11)
  - Blood lactate dehydrogenase increased [Unknown]
  - Ocular icterus [Recovered/Resolved]
  - Fatigue [Recovered/Resolved]
  - Chromaturia [Unknown]
  - Blood bilirubin increased [Recovered/Resolved]
  - Pain in extremity [Unknown]
  - Haemoglobin decreased [Recovered/Resolved]
  - Cholecystectomy [Unknown]
  - Muscular weakness [Unknown]
  - Stress [Recovered/Resolved]
  - Asthenia [Recovered/Resolved]

NARRATIVE: CASE EVENT DATE: 20190517
